FAERS Safety Report 25145810 (Version 2)
Quarter: 2025Q2

REPORT INFORMATION
  Report Type: Spontaneous
  Country: GB (occurrence: GB)
  Receive Date: 20250401
  Receipt Date: 20250410
  Transmission Date: 20250716
  Serious: Yes (Life-Threatening, Hospitalization, Other)
  Sender: PFIZER
  Company Number: None

PATIENT
  Age: 74 Year
  Sex: Male
  Weight: 94 kg

DRUGS (13)
  1. PIPERACILLIN SODIUM\TAZOBACTAM SODIUM [Suspect]
     Active Substance: PIPERACILLIN SODIUM\TAZOBACTAM SODIUM
     Indication: Osteomyelitis
     Dosage: 4.5 G, 2X/DAY
     Dates: start: 20250312, end: 20250321
  2. CLINDAMYCIN PHOSPHATE [Suspect]
     Active Substance: CLINDAMYCIN PHOSPHATE
     Indication: Osteomyelitis
     Dosage: 600 MG, 4X/DAY
     Dates: start: 20250312, end: 20250321
  3. DOXYCYCLINE [Concomitant]
     Active Substance: DOXYCYCLINE
     Indication: Osteomyelitis
     Dates: start: 20250322, end: 20250322
  4. ALLOPURINOL [Concomitant]
     Active Substance: ALLOPURINOL
  5. EPIMAX OATMEAL [Concomitant]
  6. OXYCODONE HYDROCHLORIDE [Concomitant]
     Active Substance: OXYCODONE HYDROCHLORIDE
  7. ALFACALCIDOL [Concomitant]
     Active Substance: ALFACALCIDOL
  8. APIXABAN [Concomitant]
     Active Substance: APIXABAN
  9. GLICLAZIDE [Concomitant]
     Active Substance: GLICLAZIDE
  10. DOXAZOSIN [Concomitant]
     Active Substance: DOXAZOSIN MESYLATE
  11. AMITRIPTYLINE [Concomitant]
     Active Substance: AMITRIPTYLINE
  12. FAMOTIDINE [Concomitant]
     Active Substance: FAMOTIDINE
  13. MORPHINE SULFATE [Concomitant]
     Active Substance: MORPHINE SULFATE

REACTIONS (2)
  - Stevens-Johnson syndrome [Recovering/Resolving]
  - Metabolic alkalosis [Recovering/Resolving]

NARRATIVE: CASE EVENT DATE: 20250321
